FAERS Safety Report 8088895-4 (Version None)
Quarter: 2012Q1

REPORT INFORMATION
  Report Type: 
  Country: None (occurrence: None)
  Receive Date: 20120128
  Receipt Date: 20110422
  Transmission Date: 20120608
  Serious: No
  Sender: FDA-Public Use
  Company Number: US-ABBOTT-11P-163-0721427-00

PATIENT
  Age: 67 Year
  Sex: Female

DRUGS (22)
  1. HUMALOG [Concomitant]
     Indication: TYPE 2 DIABETES MELLITUS
     Dosage: DAILY
  2. SYNTHROID [Concomitant]
     Indication: HYPOTHYROIDISM
  3. CALCIUM [Concomitant]
     Indication: MINERAL SUPPLEMENTATION
     Dosage: 2 TABS DAILY
  4. B3 [Concomitant]
     Indication: MINERAL SUPPLEMENTATION
  5. ASPIRIN [Concomitant]
     Indication: PRODUCT USED FOR UNKNOWN INDICATION
  6. OMEPRAZOLE [Concomitant]
     Indication: PRODUCT USED FOR UNKNOWN INDICATION
  7. FOLIC ACID [Concomitant]
     Indication: MINERAL SUPPLEMENTATION
     Dosage: 3 IN 1 D, IN CONJUNCTION WITH METHOTREXATE
  8. B150 [Concomitant]
     Indication: MINERAL SUPPLEMENTATION
     Dosage: DAILY
  9. HUMIRA [Suspect]
     Indication: RHEUMATOID ARTHRITIS
  10. METHOTREXATE [Concomitant]
     Indication: RHEUMATOID ARTHRITIS
     Dosage: 5 TABS WEEKLY
  11. LASIX [Concomitant]
     Indication: FLUID RETENTION
  12. MELATONIN [Concomitant]
     Indication: MINERAL SUPPLEMENTATION
     Dosage: DAILY
  13. COREG [Concomitant]
     Indication: PRODUCT USED FOR UNKNOWN INDICATION
  14. IRON [Concomitant]
     Indication: MINERAL SUPPLEMENTATION
  15. VITAMIN B-12 [Concomitant]
     Indication: MINERAL SUPPLEMENTATION
     Dosage: DAILY
  16. FISH OIL [Concomitant]
     Indication: MINERAL SUPPLEMENTATION
     Dosage: 2 TABS DAILY
  17. LIPITOR [Concomitant]
     Indication: PRODUCT USED FOR UNKNOWN INDICATION
  18. METFFORMIN HYDROCHLORIDE [Concomitant]
     Indication: TYPE 2 DIABETES MELLITUS
  19. NOVOLOG [Concomitant]
     Indication: TYPE 2 DIABETES MELLITUS
     Dosage: SLIDING SCALE
  20. MAGNESIUM [Concomitant]
     Indication: MINERAL SUPPLEMENTATION
     Dosage: DAILY
  21. HUMIRA [Suspect]
     Indication: RHEUMATOID ARTHRITIS
     Dates: start: 20091101
  22. COLACE [Concomitant]
     Indication: MINERAL SUPPLEMENTATION
     Dosage: DAILY

REACTIONS (2)
  - INJECTION SITE PAIN [None]
  - DEVICE MALFUNCTION [None]
